FAERS Safety Report 7209101-6 (Version None)
Quarter: 2011Q1

REPORT INFORMATION
  Report Type: 
  Country: None (occurrence: None)
  Receive Date: 20110104
  Receipt Date: 20101227
  Transmission Date: 20110831
  Serious: Yes (Hospitalization)
  Sender: FDA-Public Use
  Company Number: IT-B.I. PHARMACEUTICALS,INC./RIDGEFIELD-2010-DE-04460BY

PATIENT
  Sex: Female

DRUGS (2)
  1. CIPRALEX [Suspect]
     Indication: DEPRESSION
     Dosage: 5 MG
     Route: 048
     Dates: start: 20090101, end: 20090722
  2. TELMISARTAN [Suspect]
     Indication: HYPERTENSION
     Dosage: 80 MG
     Route: 048
     Dates: start: 20090101, end: 20090722

REACTIONS (3)
  - PERITONEAL DISORDER [None]
  - PYREXIA [None]
  - ABDOMINAL PAIN [None]
